FAERS Safety Report 9318510 (Version 2)
Quarter: 2014Q2

REPORT INFORMATION
  Report Type: Spontaneous
  Country: US (occurrence: US)
  Receive Date: 20130530
  Receipt Date: 20140530
  Transmission Date: 20141212
  Serious: No
  Sender: FDA-Public Use
  Company Number: US-GLAXOSMITHKLINE-A1016190A

PATIENT
  Age: 70 Year
  Sex: Male

DRUGS (2)
  1. VENTOLIN [Suspect]
     Indication: PULMONARY CONGESTION
     Dosage: 1PUFF AS REQUIRED
     Route: 055
  2. LISINOPRIL [Concomitant]

REACTIONS (4)
  - Ill-defined disorder [Unknown]
  - Dyspnoea [Unknown]
  - Product quality issue [Unknown]
  - Drug administration error [Unknown]
